FAERS Safety Report 7781326-0 (Version None)
Quarter: 2011Q3

REPORT INFORMATION
  Report Type: 
  Country: None (occurrence: None)
  Receive Date: 20110923
  Receipt Date: 20110908
  Transmission Date: 20111222
  Serious: Yes (Other)
  Sender: FDA-Public Use
  Company Number: 11-068-03

PATIENT

DRUGS (1)
  1. AMLODIPINE [Suspect]

REACTIONS (1)
  - HAEMOLYTIC ANAEMIA [None]
